FAERS Safety Report 9865571 (Version 1)
Quarter: 2014Q1

REPORT INFORMATION
  Report Type: Spontaneous
  Country: US (occurrence: US)
  Receive Date: 20140203
  Receipt Date: 20140203
  Transmission Date: 20141002
  Serious: Yes (Death, Hospitalization, Other)
  Sender: FDA-Public Use
  Company Number: US-ELI_LILLY_AND_COMPANY-US201401010543

PATIENT
  Age: 76 Year
  Sex: Male

DRUGS (3)
  1. HUMALOG LISPRO [Suspect]
     Indication: TYPE 2 DIABETES MELLITUS
     Dosage: UNK, UNKNOWN
     Route: 065
     Dates: start: 1991
  2. METFORMIN [Concomitant]
  3. ACTOS                                   /USA/ [Concomitant]

REACTIONS (4)
  - Death [Fatal]
  - Cerebrovascular accident [Unknown]
  - Blindness [Unknown]
  - Eye haemorrhage [Unknown]
